FAERS Safety Report 12229488 (Version 1)
Quarter: 2016Q2

REPORT INFORMATION
  Report Type: Report from Study
  Country: TR (occurrence: TR)
  Receive Date: 20160401
  Receipt Date: 20160401
  Transmission Date: 20160815
  Serious: Yes (Hospitalization)
  Sender: FDA-Public Use
  Company Number: TR-EMD SERONO-7283553

PATIENT
  Age: 33 Year
  Sex: Male
  Weight: 80 kg

DRUGS (3)
  1. ARVELES [Concomitant]
     Active Substance: DEXKETOPROFEN
     Indication: PAIN
  2. REBIF [Suspect]
     Active Substance: INTERFERON BETA-1A
     Indication: MULTIPLE SCLEROSIS
     Dates: start: 20130301
  3. KALIDREN [Concomitant]
     Indication: PAIN

REACTIONS (1)
  - Osteoporosis [Recovered/Resolved]

NARRATIVE: CASE EVENT DATE: 201403
